FAERS Safety Report 7898622-9 (Version None)
Quarter: 2011Q4

REPORT INFORMATION
  Report Type: 
  Country: None (occurrence: None)
  Receive Date: 20111107
  Receipt Date: 20111107
  Transmission Date: 20120403
  Serious: Yes (Hospitalization, Other)
  Sender: FDA-Public Use
  Company Number: None

PATIENT
  Age: 53 Year
  Sex: Male
  Weight: 72.574 kg

DRUGS (1)
  1. AVASTIN [Suspect]
     Indication: AGE-RELATED MACULAR DEGENERATION
     Route: 031
     Dates: start: 20110506, end: 20110930

REACTIONS (3)
  - HEADACHE [None]
  - BLINDNESS UNILATERAL [None]
  - PRODUCT PACKAGING ISSUE [None]
